FAERS Safety Report 18284022 (Version 1)
Quarter: 2020Q3

REPORT INFORMATION
  Report Type: Spontaneous
  Country: US (occurrence: US)
  Receive Date: 20200918
  Receipt Date: 20200918
  Transmission Date: 20201103
  Serious: No
  Sender: FDA-Public Use
  Company Number: US-ALLERGAN-2010304US

PATIENT
  Age: 76 Year
  Sex: Female

DRUGS (4)
  1. ZENPEP [Suspect]
     Active Substance: PANCRELIPASE AMYLASE\PANCRELIPASE LIPASE\PANCRELIPASE PROTEASE
     Indication: PANCREATIC FAILURE
     Dosage: UNK
     Dates: start: 202001
  2. CALCIUM [Concomitant]
     Active Substance: CALCIUM
     Dosage: 1000 UNITS
  3. DHEA [Concomitant]
     Active Substance: PRASTERONE
  4. VITAMIN C [Concomitant]
     Active Substance: ASCORBIC ACID

REACTIONS (3)
  - Nausea [Recovered/Resolved]
  - Headache [Recovering/Resolving]
  - Blood pressure increased [Recovered/Resolved]
